FAERS Safety Report 13584433 (Version 1)
Quarter: 2017Q2

REPORT INFORMATION
  Report Type: Spontaneous
  Country: FR (occurrence: FR)
  Receive Date: 20170526
  Receipt Date: 20170526
  Transmission Date: 20170830
  Serious: Yes (Hospitalization)
  Sender: FDA-Public Use
  Company Number: FR-ACCORD-051814

PATIENT
  Age: 65 Year
  Sex: Male

DRUGS (2)
  1. CISPLATIN ACCORD [Suspect]
     Active Substance: CISPLATIN
     Indication: LUNG SQUAMOUS CELL CARCINOMA STAGE IV
     Dosage: DOSE: 150
     Route: 042
     Dates: start: 20170301
  2. GEMCITABINE ACCORD [Suspect]
     Active Substance: GEMCITABINE HYDROCHLORIDE
     Indication: LUNG SQUAMOUS CELL CARCINOMA STAGE IV
     Route: 042
     Dates: start: 20170301

REACTIONS (3)
  - Splenic infarction [Unknown]
  - Vertigo [Unknown]
  - Constipation [Unknown]

NARRATIVE: CASE EVENT DATE: 20170308
